FAERS Safety Report 8347597-7 (Version None)
Quarter: 2012Q2

REPORT INFORMATION
  Report Type: 
  Country: None (occurrence: None)
  Receive Date: 20120509
  Receipt Date: 20120502
  Transmission Date: 20120825
  Serious: Yes (Hospitalization)
  Sender: FDA-Public Use
  Company Number: US-CELGENEUS-163-21880-12040933

PATIENT
  Sex: Female

DRUGS (13)
  1. CLINDAMYCIN [Suspect]
     Route: 065
  2. OXYCODONE HCL [Concomitant]
     Dosage: 2 TABLET
     Route: 048
  3. MUCINEX [Concomitant]
     Dosage: 600 MILLIGRAM
     Route: 065
  4. WARFARIN SODIUM [Concomitant]
     Dosage: 4 MILLIGRAM
     Route: 065
  5. METOPROLOL TARTRATE [Concomitant]
     Dosage: 25 MILLIGRAM
     Route: 065
  6. GLIPIZIDE [Concomitant]
     Dosage: 1.25 MILLIGRAM
     Route: 048
  7. REVLIMID [Suspect]
     Indication: MULTIPLE MYELOMA
     Dosage: 5 MILLIGRAM
     Route: 048
     Dates: start: 20120301, end: 20120406
  8. DOCUSATE [Concomitant]
     Dosage: 100 MILLIGRAM
     Route: 065
  9. MYCELEX [Concomitant]
     Dosage: 10 MILLIGRAM
     Route: 065
  10. CEFEPIME [Concomitant]
     Dosage: 1 MILLIGRAM
     Route: 041
  11. OXYCONTIN [Concomitant]
     Dosage: 10 MILLIGRAM
     Route: 065
  12. DAPTOMYCIN [Concomitant]
     Dosage: 500 MILLIGRAM
     Route: 041
  13. NORVASC [Concomitant]
     Dosage: 5 MILLIGRAM
     Route: 041

REACTIONS (5)
  - PYREXIA [None]
  - UNEVALUABLE EVENT [None]
  - RASH [None]
  - WOUND INFECTION [None]
  - SKIN EXFOLIATION [None]
